FAERS Safety Report 13116532 (Version 1)
Quarter: 2017Q1

REPORT INFORMATION
  Report Type: Spontaneous
  Country: US (occurrence: US)
  Receive Date: 20170116
  Receipt Date: 20170116
  Transmission Date: 20170428
  Serious: Yes (Other)
  Sender: FDA-Public Use
  Company Number: US-CIPLA LTD.-2017US00545

PATIENT

DRUGS (6)
  1. SILDENAFIL. [Suspect]
     Active Substance: SILDENAFIL
     Dosage: UNK, WITH TREPROSTINIL AT 30 MONTHS
     Route: 065
  2. TREPROSTINIL [Suspect]
     Active Substance: TREPROSTINIL
     Indication: PULMONARY ARTERIAL HYPERTENSION
     Dosage: UNK, WITH SILDENAFIL AT 30 MONTHS
  3. WARFARIN [Suspect]
     Active Substance: WARFARIN
     Indication: PULMONARY EMBOLISM
     Dosage: UNK
     Route: 065
  4. WARFARIN [Suspect]
     Active Substance: WARFARIN
     Dosage: UNK, RE-INITIATED
     Route: 065
  5. SILDENAFIL. [Suspect]
     Active Substance: SILDENAFIL
     Indication: PULMONARY ARTERIAL HYPERTENSION
     Dosage: UNK, ALONE AT 24 MONTHS
     Route: 065
  6. TREPROSTINIL [Suspect]
     Active Substance: TREPROSTINIL
     Dosage: UNK, WITH RIOCIGUAT

REACTIONS (5)
  - Foot fracture [Unknown]
  - Pulmonary embolism [Unknown]
  - Right ventricular enlargement [Unknown]
  - Disease progression [Recovering/Resolving]
  - Pulmonary arterial hypertension [Recovering/Resolving]
